FAERS Safety Report 16819630 (Version 2)
Quarter: 2019Q3

REPORT INFORMATION
  Report Type: Spontaneous
  Country: US (occurrence: US)
  Receive Date: 20190917
  Receipt Date: 20190926
  Transmission Date: 20191005
  Serious: Yes (Hospitalization, Other)
  Sender: FDA-Public Use
  Company Number: US-SHIRE-US201927345

PATIENT
  Age: 63 Year
  Sex: Female

DRUGS (1)
  1. GATTEX [Suspect]
     Active Substance: TEDUGLUTIDE\WATER
     Indication: SHORT-BOWEL SYNDROME
     Dosage: 3.6 MILLIGRAM, 1X/DAY:QD
     Route: 058
     Dates: start: 20190508

REACTIONS (6)
  - Sepsis [Unknown]
  - Polyp [Unknown]
  - Adverse event [Unknown]
  - Swelling [Unknown]
  - Intestinal mass [Unknown]
  - Adverse drug reaction [Unknown]

NARRATIVE: CASE EVENT DATE: 20190802
